FAERS Safety Report 10491823 (Version 1)
Quarter: 2014Q4

REPORT INFORMATION
  Report Type: Spontaneous
  Country: US (occurrence: US)
  Receive Date: 20141002
  Receipt Date: 20141002
  Transmission Date: 20150528
  Serious: No
  Sender: FDA-Public Use
  Company Number: US-GLAXOSMITHKLINE-A1060360A

PATIENT
  Sex: Female

DRUGS (5)
  1. INHALER [Suspect]
     Active Substance: UNSPECIFIED INGREDIENT
  2. ADVAIR HFA [Suspect]
     Active Substance: FLUTICASONE PROPIONATE\SALMETEROL XINAFOATE
     Indication: PRODUCT USED FOR UNKNOWN INDICATION
     Route: 065
  3. NEBULIZER [Suspect]
     Active Substance: UNSPECIFIED INGREDIENT
  4. PREDNISONE. [Suspect]
     Active Substance: PREDNISONE
  5. CODEINE [Suspect]
     Active Substance: CODEINE

REACTIONS (1)
  - Dyspnoea [Unknown]
